FAERS Safety Report 5390516-6 (Version None)
Quarter: 2007Q3

REPORT INFORMATION
  Report Type: 
  Country: None (occurrence: None)
  Receive Date: 20070718
  Receipt Date: 20070214
  Transmission Date: 20080115
  Serious: No
  Sender: FDA-Public Use
  Company Number: US-KINGPHARMUSA00001-K200700173

PATIENT

DRUGS (3)
  1. LEVOXYL [Suspect]
     Indication: HYPOTHYROIDISM
     Dosage: UNK, UNK
     Route: 048
     Dates: start: 20061201, end: 20070101
  2. LEVOXYL [Suspect]
     Dosage: 88 MCG, QD
     Route: 048
     Dates: start: 20070101
  3. ANTI-CHOLESTEROL DRUG [Concomitant]
     Indication: BLOOD CHOLESTEROL INCREASED
     Dosage: UNK, UNK
     Route: 048
     Dates: start: 20061201

REACTIONS (1)
  - WEIGHT INCREASED [None]
